FAERS Safety Report 6746091-4 (Version None)
Quarter: 2010Q2

REPORT INFORMATION
  Report Type: 
  Country: None (occurrence: None)
  Receive Date: 20100528
  Receipt Date: 20100519
  Transmission Date: 20101027
  Serious: Yes (Hospitalization)
  Sender: FDA-Public Use
  Company Number: FR-GENENTECH-302111

PATIENT
  Sex: Female

DRUGS (12)
  1. MABTHERA [Suspect]
     Indication: B-CELL LYMPHOMA
     Dosage: 600 MG, UNK
     Route: 042
     Dates: start: 20100116, end: 20100331
  2. CISPLATIN [Suspect]
     Indication: B-CELL LYMPHOMA
     Dosage: 150 MG, UNK
     Route: 042
     Dates: start: 20100116, end: 20100329
  3. CYTARABINE [Suspect]
     Indication: B-CELL LYMPHOMA
     Dosage: 8 G, UNK
     Route: 042
     Dates: start: 20100116, end: 20100330
  4. DEXAMETASONE [Suspect]
     Indication: B-CELL LYMPHOMA
     Dosage: 40 MG, UNK
     Route: 042
     Dates: start: 20100116, end: 20100331
  5. MOPRAL [Concomitant]
     Indication: DRUG USE FOR UNKNOWN INDICATION
     Dosage: UNK
  6. SPECIAFOLDINE [Concomitant]
     Indication: DRUG USE FOR UNKNOWN INDICATION
     Dosage: UNK
  7. L-THYROXIN 75 [Concomitant]
     Indication: DRUG USE FOR UNKNOWN INDICATION
     Dosage: UNK
  8. CARDENSIEL [Concomitant]
     Indication: DRUG USE FOR UNKNOWN INDICATION
     Dosage: UNK
  9. EZETROL [Concomitant]
     Indication: DRUG USE FOR UNKNOWN INDICATION
     Dosage: UNK
  10. COVERSYL [Concomitant]
     Indication: DRUG USE FOR UNKNOWN INDICATION
     Dosage: UNK
  11. ZELITREX [Concomitant]
     Indication: DRUG USE FOR UNKNOWN INDICATION
     Dosage: UNK
  12. GAVISCON [Concomitant]
     Indication: DRUG USE FOR UNKNOWN INDICATION
     Dosage: UNK

REACTIONS (2)
  - BONE MARROW FAILURE [None]
  - RENAL FAILURE ACUTE [None]
